FAERS Safety Report 4405114-8 (Version None)
Quarter: 2004Q3

REPORT INFORMATION
  Report Type: 
  Country: None (occurrence: None)
  Receive Date: 20040716
  Receipt Date: 20040712
  Transmission Date: 20050211
  Serious: Yes (Other)
  Sender: FDA-Public Use
  Company Number: US-JNJFOC-20040505807

PATIENT
  Age: 19 Year
  Sex: Female
  Weight: 65.7716 kg

DRUGS (6)
  1. RISPERDAL [Suspect]
     Indication: DELUSION
     Dosage: 2.5 MG, 1 IN 1 DAY, ORAL
     Route: 048
     Dates: start: 20040402
  2. RISPERDAL [Suspect]
     Indication: DEPRESSION
     Dosage: 2.5 MG, 1 IN 1 DAY, ORAL
     Route: 048
     Dates: start: 20040402
  3. RISPERDAL [Suspect]
     Indication: HALLUCINATION
     Dosage: 2.5 MG, 1 IN 1 DAY, ORAL
     Route: 048
     Dates: start: 20040402
  4. RISPERDAL [Suspect]
     Indication: PANIC ATTACK
     Dosage: 2.5 MG, 1 IN 1 DAY, ORAL
     Route: 048
     Dates: start: 20040402
  5. RISPERDAL [Suspect]
     Indication: PSYCHOTIC DISORDER
     Dosage: 2.5 MG, 1 IN 1 DAY, ORAL
     Route: 048
     Dates: start: 20040402
  6. ZOLOFT [Concomitant]

REACTIONS (3)
  - DRUG EXPOSURE DURING PREGNANCY [None]
  - UTERINE CONTRACTIONS ABNORMAL [None]
  - UTERINE CONTRACTIONS DURING PREGNANCY [None]
